FAERS Safety Report 5031537-2 (Version None)
Quarter: 2006Q2

REPORT INFORMATION
  Report Type: 
  Country: None (occurrence: None)
  Receive Date: 20060616
  Receipt Date: 20060530
  Transmission Date: 20061013
  Serious: Yes (Hospitalization, Other)
  Sender: FDA-Public Use
  Company Number: US200603000270

PATIENT
  Age: 32 Year
  Sex: Male
  Weight: 98.9 kg

DRUGS (13)
  1. ZYPREXA [Suspect]
     Dosage: SEE IMAGE
     Dates: start: 19990701, end: 20020601
  2. ZYPREXA [Suspect]
     Dosage: SEE IMAGE
     Dates: start: 20020801, end: 20030101
  3. ZYPREXA [Suspect]
     Dosage: SEE IMAGE
     Dates: start: 20030201, end: 20030401
  4. ZYPREXA [Suspect]
     Dosage: SEE IMAGE
     Dates: start: 20030601, end: 20030701
  5. ZYPREXA [Suspect]
     Dosage: SEE IMAGE
     Dates: start: 20031001, end: 20041001
  6. ZYPREXA [Suspect]
     Dosage: SEE IMAGE
     Dates: start: 20041101, end: 20050501
  7. ZYPREXA [Suspect]
     Dosage: SEE IMAGE
     Dates: start: 20010301
  8. ZYPREXA [Suspect]
     Dosage: SEE IMAGE
     Dates: start: 20010901
  9. ZYPREXA [Suspect]
     Dosage: SEE IMAGE
     Dates: start: 20020301
  10. REMERON [Concomitant]
  11. ZOLOFT [Concomitant]
  12. CELEXA [Concomitant]
  13. DEPAKOTE [Concomitant]

REACTIONS (4)
  - CARDIAC DISORDER [None]
  - DIABETES MELLITUS NON-INSULIN-DEPENDENT [None]
  - METABOLIC DISORDER [None]
  - WEIGHT INCREASED [None]
